FAERS Safety Report 24270425 (Version 2)
Quarter: 2024Q3

REPORT INFORMATION
  Report Type: Report from Study
  Country: GT (occurrence: HN)
  Receive Date: 20240830
  Receipt Date: 20240909
  Transmission Date: 20241017
  Serious: Yes (Hospitalization, Other)
  Sender: ELI LILLY AND CO
  Company Number: HN-Merck Healthcare KGaA-2024044730

PATIENT
  Age: 82 Year
  Sex: Male

DRUGS (3)
  1. CETUXIMAB [Suspect]
     Active Substance: CETUXIMAB
     Indication: Laryngeal cancer
     Dosage: 300 MG, WEEKLY (1/W)
     Route: 042
     Dates: start: 20240722
  2. ILTUX HCT [Concomitant]
     Indication: Product used for unknown indication
     Dosage: 40 MG, DAILY
     Route: 065
  3. LEVOTHYROXINE [Concomitant]
     Active Substance: LEVOTHYROXINE\LEVOTHYROXINE SODIUM
     Indication: Hypothyroidism

REACTIONS (4)
  - Perforation [Not Recovered/Not Resolved]
  - Malnutrition [Not Recovered/Not Resolved]
  - Device dislocation [Not Recovered/Not Resolved]
  - Decreased appetite [Not Recovered/Not Resolved]

NARRATIVE: CASE EVENT DATE: 20240805
